FAERS Safety Report 12381311 (Version 1)
Quarter: 2016Q2

REPORT INFORMATION
  Report Type: Spontaneous
  Country: CZ (occurrence: CZ)
  Receive Date: 20160518
  Receipt Date: 20160518
  Transmission Date: 20160815
  Serious: Yes (Hospitalization)
  Sender: FDA-Public Use
  Company Number: CZ-DEPOMED, INC.-CZ-2016DEP009629

PATIENT
  Age: 61 Year
  Sex: Female

DRUGS (4)
  1. VEMURAFENIB [Suspect]
     Active Substance: VEMURAFENIB
     Indication: SUPERFICIAL SPREADING MELANOMA STAGE UNSPECIFIED
     Dosage: 960 MG, BID
  2. VEMURAFENIB [Suspect]
     Active Substance: VEMURAFENIB
     Dosage: 480 MG, BID
  3. DICLOFENAC [Suspect]
     Active Substance: DICLOFENAC
     Indication: ARTHRALGIA
     Dosage: UNK, APPLIED TO THE AREA AROUND THE ANKLES
     Route: 061
  4. PARACETAMOL [Concomitant]
     Active Substance: ACETAMINOPHEN
     Indication: ARTHRALGIA
     Dosage: UNK

REACTIONS (11)
  - Erythema [Recovered/Resolved]
  - Application site reaction [Recovered/Resolved]
  - Blister [Recovered/Resolved]
  - Peripheral swelling [Recovered/Resolved]
  - Pain in extremity [Recovered/Resolved]
  - Photosensitivity reaction [Recovered/Resolved]
  - Lymphocytic infiltration [Recovered/Resolved]
  - Pruritus [Recovered/Resolved]
  - Dermatitis [Recovered/Resolved]
  - Skin toxicity [Recovered/Resolved]
  - Drug eruption [Recovered/Resolved]
